FAERS Safety Report 9234852 (Version 1)
Quarter: 2013Q2

REPORT INFORMATION
  Report Type: Spontaneous
  Country: US (occurrence: US)
  Receive Date: 20130416
  Receipt Date: 20130416
  Transmission Date: 20140414
  Serious: Yes (Hospitalization, Other)
  Sender: FDA-Public Use
  Company Number: US201001002934

PATIENT
  Age: 50 Year
  Sex: Male
  Weight: 102.04 kg

DRUGS (11)
  1. BYETTA PEN DISPOSABLE [Suspect]
     Route: 058
     Dates: start: 20070110
  2. BYETTA PEN DISPOSABLE [Suspect]
     Route: 058
     Dates: end: 200807
  3. EXENATIDE UNK STRENGTH PEN, DISPOSABLE DEVICE [Concomitant]
  4. LANTUS [Concomitant]
  5. CHOLESTEROL MEDICATION [Concomitant]
  6. TYLENOL [Concomitant]
  7. TRICOR [Concomitant]
  8. GLUCOPHAGE [Concomitant]
  9. PRANDIN [Concomitant]
  10. LEVAQUIN [Concomitant]
  11. LESCOL [Concomitant]

REACTIONS (3)
  - Pancreatitis acute [Recovered/Resolved]
  - Hyperlipidaemia [Unknown]
  - Off label use [Recovered/Resolved]
